FAERS Safety Report 9683640 (Version 1)
Quarter: 2013Q4

REPORT INFORMATION
  Report Type: Spontaneous
  Country: US (occurrence: US)
  Receive Date: 20131112
  Receipt Date: 20131112
  Transmission Date: 20140711
  Serious: Yes (Hospitalization, Other)
  Sender: FDA-Public Use
  Company Number: US-PFIZER INC-2013320156

PATIENT
  Age: 18 Year
  Sex: Male

DRUGS (22)
  1. MOTRIN [Suspect]
     Indication: PYREXIA
     Dosage: UNK
     Route: 065
  2. MOTRIN [Suspect]
     Indication: HEADACHE
  3. MOTRIN [Suspect]
     Indication: ASTHENIA
  4. MOTRIN [Suspect]
     Indication: DYSPNOEA
  5. MOTRIN [Suspect]
     Indication: ASTHMA
  6. TYLENOL ANALGESIC UNKNOWN [Suspect]
     Indication: PYREXIA
     Dosage: UNK
     Route: 065
  7. TYLENOL ANALGESIC UNKNOWN [Suspect]
     Indication: HEADACHE
  8. TYLENOL ANALGESIC UNKNOWN [Suspect]
     Indication: ASTHENIA
  9. TYLENOL ANALGESIC UNKNOWN [Suspect]
     Indication: DYSPNOEA
  10. TYLENOL ANALGESIC UNKNOWN [Suspect]
     Indication: ASTHMA
  11. REMICADE [Concomitant]
     Indication: RHEUMATOID ARTHRITIS
     Dosage: UNK
  12. METHOTREXATE [Concomitant]
     Dosage: UNK
  13. FOLIC ACID [Concomitant]
     Dosage: UNK
  14. OMEPRAZOLE [Concomitant]
     Dosage: UNK
  15. PIROXICAM [Concomitant]
     Dosage: UNK
  16. MINOCYCLINE [Concomitant]
     Dosage: UNK
  17. VITAMIN D [Concomitant]
     Dosage: UNK
  18. CETIRIZINE [Concomitant]
     Dosage: UNK
  19. TRAMADOL [Concomitant]
     Dosage: UNK
  20. DEPAKOTE [Concomitant]
     Dosage: UNK
  21. MULTIVITAMINS [Concomitant]
     Dosage: UNK
  22. FISH OIL [Concomitant]
     Dosage: UNK

REACTIONS (10)
  - Suicidal ideation [Unknown]
  - Bronchitis [Unknown]
  - Asthma [Unknown]
  - Ear discomfort [Unknown]
  - Palpitations [Unknown]
  - Headache [Unknown]
  - Pyrexia [Unknown]
  - Somnolence [Unknown]
  - Crying [Unknown]
  - Pain [Unknown]
